FAERS Safety Report 8238681-7 (Version None)
Quarter: 2012Q1

REPORT INFORMATION
  Report Type: 
  Country: None (occurrence: None)
  Receive Date: 20120327
  Receipt Date: 20120322
  Transmission Date: 20120608
  Serious: No
  Sender: FDA-Public Use
  Company Number: US-BAYER-2012-029490

PATIENT
  Age: 18 Year
  Sex: Female
  Weight: 63 kg

DRUGS (1)
  1. ALEVE (CAPLET) [Suspect]
     Indication: DYSMENORRHOEA
     Dosage: UNK
     Route: 048
     Dates: start: 20120322

REACTIONS (5)
  - FEELING HOT [None]
  - ABDOMINAL PAIN UPPER [None]
  - VOMITING [None]
  - HYPERHIDROSIS [None]
  - NAUSEA [None]
